FAERS Safety Report 16955359 (Version 1)
Quarter: 2019Q4

REPORT INFORMATION
  Report Type: Spontaneous
  Country: US (occurrence: US)
  Receive Date: 20191024
  Receipt Date: 20191024
  Transmission Date: 20200122
  Serious: No
  Sender: FDA-Public Use
  Company Number: US-EMMAUS MEDICAL, INC.-EMM201909-000281

PATIENT
  Age: 8 Year
  Sex: Male

DRUGS (5)
  1. HYDROXYUREA. [Concomitant]
     Active Substance: HYDROXYUREA
     Indication: SICKLE CELL DISEASE
  2. FOLIC ACID. [Concomitant]
     Active Substance: FOLIC ACID
     Indication: MINERAL SUPPLEMENTATION
  3. PENICILLIN [Concomitant]
     Active Substance: PENICILLIN
     Indication: PROPHYLAXIS
  4. ENDARI [Suspect]
     Active Substance: GLUTAMINE
     Indication: SICKLE CELL DISEASE
     Dosage: 8 OUNCES OF ENDARI WITH LIQUID
  5. FOLIC ACID. [Concomitant]
     Active Substance: FOLIC ACID
     Indication: SICKLE CELL DISEASE

REACTIONS (3)
  - Product administration error [Unknown]
  - Sickle cell anaemia with crisis [Recovered/Resolved]
  - Product dose omission [Unknown]
